FAERS Safety Report 22229760 (Version 1)
Quarter: 2023Q2

REPORT INFORMATION
  Report Type: Spontaneous
  Country: TW (occurrence: TW)
  Receive Date: 20230419
  Receipt Date: 20230419
  Transmission Date: 20230721
  Serious: Yes (Hospitalization, Other)
  Sender: FDA-Public Use
  Company Number: TW-BAYER-2023A046259

PATIENT
  Age: 77 Year
  Sex: Male
  Weight: 83.9 kg

DRUGS (1)
  1. XOFIGO [Suspect]
     Active Substance: RADIUM RA-223 DICHLORIDE
     Dosage: FIVE TIMES IN TOTAL

REACTIONS (2)
  - Traumatic spinal cord compression [None]
  - Fall [None]

NARRATIVE: CASE EVENT DATE: 20230322
